FAERS Safety Report 12752827 (Version 2)
Quarter: 2016Q4

REPORT INFORMATION
  Report Type: Spontaneous
  Country: US (occurrence: US)
  Receive Date: 20160916
  Receipt Date: 20161006
  Transmission Date: 20170207
  Serious: No
  Sender: FDA-Public Use
  Company Number: US-ASTRAZENECA-2016SE94478

PATIENT
  Sex: Male

DRUGS (1)
  1. PULMICORT FLEXHALER [Suspect]
     Active Substance: BUDESONIDE
     Dosage: 90 MCG 1 PUFF TWICE A DAY
     Route: 055

REACTIONS (4)
  - Off label use [Unknown]
  - Product quality issue [Unknown]
  - Drug ineffective [Unknown]
  - Nasal congestion [Unknown]
